FAERS Safety Report 11715782 (Version 2)
Quarter: 2015Q4

REPORT INFORMATION
  Report Type: Spontaneous
  Country: US (occurrence: US)
  Receive Date: 20151104
  Receipt Date: 20151110
  Transmission Date: 20160304
  Serious: No
  Sender: FDA-Public Use
  Company Number: US-ELI_LILLY_AND_COMPANY-US201108004416

PATIENT
  Sex: Female

DRUGS (2)
  1. FORTEO [Suspect]
     Active Substance: TERIPARATIDE
     Indication: OSTEOPOROSIS
     Dosage: 20 UG, QD
     Dates: start: 201107
  2. FORTEO [Suspect]
     Active Substance: TERIPARATIDE
     Dosage: 20 UG, QD

REACTIONS (13)
  - Arthralgia [Not Recovered/Not Resolved]
  - Injection site erythema [Unknown]
  - Discomfort [Unknown]
  - Injection site pain [Unknown]
  - Burning sensation [Not Recovered/Not Resolved]
  - Musculoskeletal disorder [Unknown]
  - Vision blurred [Unknown]
  - Visual impairment [Unknown]
  - Peripheral swelling [Unknown]
  - Bone pain [Not Recovered/Not Resolved]
  - Headache [Unknown]
  - Joint swelling [Unknown]
  - Pain [Unknown]
